FAERS Safety Report 5046584-4 (Version None)
Quarter: 2006Q3

REPORT INFORMATION
  Report Type: 
  Country: None (occurrence: None)
  Receive Date: 20060706
  Receipt Date: 20060706
  Transmission Date: 20061208
  Serious: No
  Sender: FDA-Public Use
  Company Number: None

PATIENT
  Sex: Female
  Weight: 71.2 kg

DRUGS (3)
  1. CISPLATIN [Suspect]
     Dosage: 89 MG
  2. TOPOTECAN [Suspect]
     Dosage: 3.9 MG
  3. ZOFRAN [Concomitant]

REACTIONS (4)
  - METASTASES TO LIVER [None]
  - METASTASES TO LUNG [None]
  - METASTASES TO LYMPH NODES [None]
  - NEUTROPENIA [None]
